FAERS Safety Report 5348326-1 (Version None)
Quarter: 2007Q2

REPORT INFORMATION
  Report Type: 
  Country: None (occurrence: None)
  Receive Date: 20070605
  Receipt Date: 20070521
  Transmission Date: 20071010
  Serious: Yes (Disabling, Other)
  Sender: FDA-Public Use
  Company Number: DSA_29235_2007

PATIENT
  Sex: Male

DRUGS (8)
  1. TEMESTA (TEMESTA) (NOT SPECIFIED) [Suspect]
     Dosage: (ORAL)
     Route: 048
     Dates: start: 20060901, end: 20060915
  2. NEUPOGEN (NEUPOGEN) (NOT SPECIFIED) [Suspect]
     Dosage: (SUBCUTANEOUS)
     Route: 058
     Dates: start: 20060914, end: 20060915
  3. NAVOBAN (NAVOBAN) (NOT SPECIFIED) [Suspect]
     Dosage: (ORAL)
     Route: 048
     Dates: start: 20060901, end: 20060915
  4. PRIMPERAN /00041901/ (PRIMPERAN) (NOT SPECIFIED) [Suspect]
     Dosage: (ORAL)
     Route: 048
     Dates: start: 20060901, end: 20060915
  5. CHEMOTHERAPEUTIC AGENT (UNSPECIFIED) [Concomitant]
  6. FORTECORTIN /00016001/ [Concomitant]
  7. NEXIUM [Concomitant]
  8. ALLOPURINOL [Concomitant]

REACTIONS (7)
  - BACK PAIN [None]
  - BONE PAIN [None]
  - CHEST DISCOMFORT [None]
  - CHEST PAIN [None]
  - NIGHTMARE [None]
  - SENSATION OF PRESSURE [None]
  - SENSORY DISTURBANCE [None]
